FAERS Safety Report 7575449-9 (Version None)
Quarter: 2011Q2

REPORT INFORMATION
  Report Type: 
  Country: None (occurrence: None)
  Receive Date: 20110627
  Receipt Date: 20110613
  Transmission Date: 20111010
  Serious: Yes (Hospitalization, Other)
  Sender: FDA-Public Use
  Company Number: US-ELI_LILLY_AND_COMPANY-US201106003673

PATIENT
  Sex: Female

DRUGS (5)
  1. HUMALOG [Suspect]
     Dosage: UNK, PRN
     Route: 065
  2. LANTUS [Concomitant]
     Dosage: 7 U, EACH MORNING
  3. HUMALOG [Suspect]
     Indication: TYPE 1 DIABETES MELLITUS
     Dosage: UNK UNK, PRN
  4. HUMALOG [Suspect]
     Dosage: UNK, PRN
     Route: 065
     Dates: start: 19930101
  5. LANTUS [Concomitant]
     Dosage: 4 U, EACH EVENING

REACTIONS (27)
  - CARDIAC DISORDER [None]
  - INTERVERTEBRAL DISC OPERATION [None]
  - CONFUSIONAL STATE [None]
  - LYMPHOMA [None]
  - CARTILAGE INJURY [None]
  - DUPUYTREN'S CONTRACTURE [None]
  - VITREOUS FLOATERS [None]
  - ANGER [None]
  - BLOOD GLUCOSE INCREASED [None]
  - HYPOGLYCAEMIC SEIZURE [None]
  - MUSCLE SPASMS [None]
  - VISUAL ACUITY REDUCED [None]
  - BLOOD GLUCOSE DECREASED [None]
  - CONNECTIVE TISSUE DISORDER [None]
  - INJECTION SITE PAIN [None]
  - HYPOGLYCAEMIC UNCONSCIOUSNESS [None]
  - DIABETES MELLITUS INADEQUATE CONTROL [None]
  - EYE OPERATION [None]
  - DIABETIC RETINOPATHY [None]
  - INCORRECT DOSE ADMINISTERED [None]
  - ROTATOR CUFF SYNDROME [None]
  - LIMB OPERATION [None]
  - ANKLE OPERATION [None]
  - BLOOD GLUCOSE FLUCTUATION [None]
  - CARPAL TUNNEL SYNDROME [None]
  - TRIGGER FINGER [None]
  - DRUG DOSE OMISSION [None]
